FAERS Safety Report 15815461 (Version 2)
Quarter: 2019Q1

REPORT INFORMATION
  Report Type: Report from Study
  Country: US (occurrence: US)
  Receive Date: 20190112
  Receipt Date: 20190121
  Transmission Date: 20190417
  Serious: Yes (Life-Threatening, Hospitalization, Other)
  Sender: FDA-Public Use
  Company Number: US-AMGEN-USACT2018004629

PATIENT
  Age: 52 Year
  Sex: Female
  Weight: 86.6 kg

DRUGS (2)
  1. ROMIPLOSTIM [Suspect]
     Active Substance: ROMIPLOSTIM
     Indication: THROMBOCYTOPENIA
     Dosage: 510 MCG, QWK
     Route: 058
     Dates: start: 20170921
  2. ROMIPLOSTIM [Suspect]
     Active Substance: ROMIPLOSTIM
     Dosage: 950 MCG, QWK
     Route: 058

REACTIONS (9)
  - Acute coronary syndrome [Not Recovered/Not Resolved]
  - Pyrexia [Unknown]
  - Troponin I increased [Recovered/Resolved]
  - Platelet count decreased [Unknown]
  - Acute kidney injury [Not Recovered/Not Resolved]
  - Dyspnoea [Recovered/Resolved]
  - Chest pain [Recovered/Resolved]
  - Myocardial infarction [Recovered/Resolved]
  - Cerebrovascular accident [Unknown]

NARRATIVE: CASE EVENT DATE: 20180108
